FAERS Safety Report 13081853 (Version 1)
Quarter: 2017Q1

REPORT INFORMATION
  Report Type: Spontaneous
  Country: AR (occurrence: AR)
  Receive Date: 20170103
  Receipt Date: 20170103
  Transmission Date: 20170428
  Serious: Yes (Other)
  Sender: FDA-Public Use
  Company Number: AR-JNJFOC-20161224107

PATIENT

DRUGS (6)
  1. DOXORUBICIN HYDROCHLORIDE. [Suspect]
     Active Substance: DOXORUBICIN HYDROCHLORIDE
     Indication: NEPHROBLASTOMA
     Dosage: FOR HIGH RISK STAGE1, STAGE 2, STAGE3 AND  INTERMEDIATE RISK STAGE3
     Route: 065
  2. ETOPOSIDE. [Suspect]
     Active Substance: ETOPOSIDE
     Indication: NEPHROBLASTOMA
     Dosage: IN HIGH RISK STAGE 2, STAGE 3 PATIENTS FOR 34 WEEKS
     Route: 065
  3. CARBOPLATIN. [Suspect]
     Active Substance: CARBOPLATIN
     Indication: NEPHROBLASTOMA
     Dosage: IN HIGH RISK STAGE 2 AND STAGE 3 PATIENTS.
     Route: 065
  4. CYCLOPHOSPHAMIDE. [Suspect]
     Active Substance: CYCLOPHOSPHAMIDE
     Indication: NEPHROBLASTOMA
     Dosage: IN HIGH RISK STAGE 2 AND STAGE 3
     Route: 065
  5. ACTINOMYCIN D [Suspect]
     Active Substance: DACTINOMYCIN
     Indication: NEPHROBLASTOMA
     Dosage: 27 WK (45 MCG/KG) FOR STAGE 1 HIGH RISK AND INTERMEDIATE RISK STAGE 3
     Route: 065
  6. VINCRISTINE [Suspect]
     Active Substance: VINCRISTINE
     Indication: NEPHROBLASTOMA
     Dosage: AVD REGIMEN
     Route: 065

REACTIONS (9)
  - Febrile neutropenia [Unknown]
  - Product use issue [Unknown]
  - Venoocclusive disease [Unknown]
  - Haematotoxicity [Unknown]
  - Ejection fraction decreased [Unknown]
  - Off label use [Unknown]
  - Neuropathy peripheral [Unknown]
  - Toxicity to various agents [Unknown]
  - Thrombocytopenia [Unknown]
